FAERS Safety Report 9262737 (Version 2)
Quarter: 2013Q4

REPORT INFORMATION
  Report Type: Spontaneous
  Country: BR (occurrence: BR)
  Receive Date: 20130430
  Receipt Date: 20131113
  Transmission Date: 20140711
  Serious: Yes (Hospitalization, Other)
  Sender: FDA-Public Use
  Company Number: BR-AMGEN-BRASP2013029626

PATIENT
  Age: 68 Year
  Sex: Female
  Weight: 52 kg

DRUGS (2)
  1. ENBREL [Suspect]
     Indication: PSORIATIC ARTHROPATHY
     Dosage: 50 MG, ONCE WEEKLY
     Route: 065
  2. ENBREL [Suspect]
     Dosage: UNK
     Route: 065
     Dates: end: 201308

REACTIONS (6)
  - Road traffic accident [Unknown]
  - Abasia [Not Recovered/Not Resolved]
  - Crush injury [Unknown]
  - Tibia fracture [Unknown]
  - Femur fracture [Unknown]
  - Ankle fracture [Unknown]
